FAERS Safety Report 10762137 (Version 1)
Quarter: 2015Q1

REPORT INFORMATION
  Report Type: Spontaneous
  Country: US (occurrence: None)
  Receive Date: 20150129
  Receipt Date: 20150129
  Transmission Date: 20150721
  Serious: Yes (Hospitalization)
  Sender: FDA-Public Use
  Company Number: 2014019084

PATIENT
  Age: 44 Year
  Sex: Male
  Weight: 88 kg

DRUGS (2)
  1. KEPPRA [Suspect]
     Active Substance: LEVETIRACETAM
     Indication: SEIZURE
  2. DILANTIN (PHENYTOIN SODIUM) [Concomitant]
     Active Substance: PHENYTOIN SODIUM

REACTIONS (2)
  - Headache [None]
  - Generalised tonic-clonic seizure [None]

NARRATIVE: CASE EVENT DATE: 201409
